FAERS Safety Report 7178065-6 (Version None)
Quarter: 2010Q4

REPORT INFORMATION
  Report Type: 
  Country: None (occurrence: None)
  Receive Date: 20101220
  Receipt Date: 20101210
  Transmission Date: 20110411
  Serious: Yes (Death)
  Sender: FDA-Public Use
  Company Number: A0813640A

PATIENT
  Age: 69 Year
  Sex: Female
  Weight: 63.2 kg

DRUGS (2)
  1. TYKERB [Suspect]
     Dosage: 250MG UNKNOWN
     Route: 048
     Dates: start: 20090604, end: 20091021
  2. XELODA [Concomitant]
     Dosage: 1000MG TWICE PER DAY
     Route: 048
     Dates: start: 20090604, end: 20091021

REACTIONS (4)
  - DEATH [None]
  - DRUG INEFFECTIVE [None]
  - NEOPLASM MALIGNANT [None]
  - NEOPLASM RECURRENCE [None]
